FAERS Safety Report 8789717 (Version 3)
Quarter: 2013Q1

REPORT INFORMATION
  Report Type: Spontaneous
  Country: US (occurrence: None)
  Receive Date: 20120906
  Receipt Date: 20130219
  Transmission Date: 20140127
  Serious: Yes (Other)
  Sender: FDA-Public Use
  Company Number: AUR-APL-2012-03775

PATIENT
  Sex: Female
  Weight: 2.5 kg

DRUGS (3)
  1. ZIDOVUDINE [Suspect]
     Indication: ANTIRETROVIRAL THERAPY
     Route: 064
     Dates: start: 20101120
  2. DARUNAVIR [Suspect]
     Indication: ANTIRETROVIRAL THERAPY
     Route: 064
     Dates: start: 20101120
  3. RITONAVIR [Suspect]
     Indication: ANTIRETROVIRAL THERAPY
     Route: 064
     Dates: start: 20101120

REACTIONS (4)
  - Maternal drugs affecting foetus [None]
  - Premature baby [None]
  - Foetal growth restriction [None]
  - Neonatal hypoxia [None]
